FAERS Safety Report 7112240-1 (Version None)
Quarter: 2010Q4

REPORT INFORMATION
  Report Type: 
  Country: None (occurrence: None)
  Receive Date: 20101119
  Receipt Date: 20100420
  Transmission Date: 20110411
  Serious: No
  Sender: FDA-Public Use
  Company Number: A0855886A

PATIENT
  Age: 67 Year
  Sex: Male

DRUGS (13)
  1. AVODART [Suspect]
     Indication: BENIGN PROSTATIC HYPERPLASIA
     Dosage: .5MG PER DAY
     Route: 048
     Dates: start: 20090809
  2. CRESTOR [Concomitant]
  3. VIT E [Concomitant]
  4. CALCIUM + MAGNESIUM [Concomitant]
  5. VITAMIN B COMPLEX CAP [Concomitant]
  6. GLUCOSAMINE [Concomitant]
  7. RAMIPRIL [Concomitant]
  8. UROXATRAL [Concomitant]
  9. UNSPECIFIED MEDICATION [Concomitant]
  10. ALLOPURINOL [Concomitant]
  11. ZEGERID [Concomitant]
  12. CO-Q10 [Concomitant]
  13. ASPIRIN [Concomitant]

REACTIONS (5)
  - BREAST DISCOMFORT [None]
  - BREAST SWELLING [None]
  - BREAST TENDERNESS [None]
  - HAIR TEXTURE ABNORMAL [None]
  - MUSCULAR WEAKNESS [None]
